FAERS Safety Report 5883982-0 (Version None)
Quarter: 2008Q3

REPORT INFORMATION
  Report Type: 
  Country: None (occurrence: None)
  Receive Date: 20080915
  Receipt Date: 20080902
  Transmission Date: 20090109
  Serious: Yes (Death)
  Sender: FDA-Public Use
  Company Number: FR-ROCHE-584238

PATIENT
  Sex: Male

DRUGS (2)
  1. XELODA [Suspect]
     Dosage: DOSE REGIMEN REPORTED AS 2300 MG BI
     Route: 048
     Dates: start: 20080515, end: 20080527
  2. MITOMYCIN [Suspect]
     Route: 042
     Dates: start: 20080521, end: 20080521

REACTIONS (2)
  - BONE MARROW FAILURE [None]
  - STOMATITIS HAEMORRHAGIC [None]
